FAERS Safety Report 11754429 (Version 1)
Quarter: 2015Q4

REPORT INFORMATION
  Report Type: Spontaneous
  Country: US (occurrence: US)
  Receive Date: 20151119
  Receipt Date: 20151119
  Transmission Date: 20160304
  Serious: Yes (Hospitalization)
  Sender: FDA-Public Use
  Company Number: US-BEH-2015055876

PATIENT
  Age: 58 Year
  Sex: Female
  Weight: 80 kg

DRUGS (16)
  1. HIZENTRA [Suspect]
     Active Substance: HUMAN IMMUNOGLOBULIN G
     Indication: PRODUCT USED FOR UNKNOWN INDICATION
     Route: 058
     Dates: start: 20150624
  2. PROMETHAZINE [Concomitant]
     Active Substance: PROMETHAZINE\PROMETHAZINE HYDROCHLORIDE
  3. CUTIVATE [Concomitant]
     Active Substance: FLUTICASONE PROPIONATE
  4. SAVELLA [Concomitant]
     Active Substance: MILNACIPRAN HYDROCHLORIDE
  5. ADDERALL [Concomitant]
     Active Substance: AMPHETAMINE ASPARTATE\AMPHETAMINE SULFATE\DEXTROAMPHETAMINE SACCHARATE\DEXTROAMPHETAMINE SULFATE
  6. ACETAMINOPHEN. [Concomitant]
     Active Substance: ACETAMINOPHEN
  7. DIPHENHYDRAMINE. [Concomitant]
     Active Substance: DIPHENHYDRAMINE
  8. L-M-X [Concomitant]
  9. LYRICA [Concomitant]
     Active Substance: PREGABALIN
  10. PROVIGIL [Concomitant]
     Active Substance: MODAFINIL
  11. SYNTHROID [Concomitant]
     Active Substance: LEVOTHYROXINE SODIUM
  12. IMITREX [Concomitant]
     Active Substance: SUMATRIPTAN\SUMATRIPTAN SUCCINATE
  13. ATIVAN [Concomitant]
     Active Substance: LORAZEPAM
  14. ORAMORPH [Concomitant]
     Active Substance: MORPHINE SULFATE
  15. EPIPEN [Concomitant]
     Active Substance: EPINEPHRINE
  16. BACLOFEN. [Concomitant]
     Active Substance: BACLOFEN

REACTIONS (2)
  - Bladder mass [Unknown]
  - Bladder operation [Unknown]

NARRATIVE: CASE EVENT DATE: 20151109
